FAERS Safety Report 7815741-3 (Version None)
Quarter: 2011Q4

REPORT INFORMATION
  Report Type: 
  Country: None (occurrence: None)
  Receive Date: 20111014
  Receipt Date: 20111010
  Transmission Date: 20120403
  Serious: Yes (Hospitalization)
  Sender: FDA-Public Use
  Company Number: US-ABBOTT-11P-163-0862481-00

PATIENT
  Sex: Female
  Weight: 72.64 kg

DRUGS (2)
  1. HUMIRA [Suspect]
     Indication: CROHN'S DISEASE
     Dates: start: 20110501, end: 20111001
  2. PENTASA [Concomitant]
     Indication: CROHN'S DISEASE

REACTIONS (8)
  - VOMITING [None]
  - ABDOMINAL DISTENSION [None]
  - CROHN'S DISEASE [None]
  - BLOOD MAGNESIUM DECREASED [None]
  - DYSPHAGIA [None]
  - BLOOD POTASSIUM DECREASED [None]
  - ABDOMINAL PAIN [None]
  - INTESTINAL OBSTRUCTION [None]
